FAERS Safety Report 6895417-X (Version None)
Quarter: 2010Q3

REPORT INFORMATION
  Report Type: 
  Country: None (occurrence: None)
  Receive Date: 20100730
  Receipt Date: 20100730
  Transmission Date: 20110219
  Serious: Yes (Other)
  Sender: FDA-Public Use
  Company Number: None

PATIENT
  Sex: Female
  Weight: 56.6996 kg

DRUGS (2)
  1. ZICAM NASALGEL ZICAM [Suspect]
     Indication: HEADACHE
     Dosage: ONE SQUIRT ONE TIME NASAL
     Route: 045
     Dates: start: 20100630, end: 20100630
  2. ZICAM NASALGEL ZICAM [Suspect]
     Indication: NASAL CONGESTION
     Dosage: ONE SQUIRT ONE TIME NASAL
     Route: 045
     Dates: start: 20100630, end: 20100630

REACTIONS (3)
  - AGEUSIA [None]
  - ANOSMIA [None]
  - SINUS HEADACHE [None]
